FAERS Safety Report 24565858 (Version 1)
Quarter: 2024Q4

REPORT INFORMATION
  Report Type: Spontaneous
  Country: US (occurrence: US)
  Receive Date: 20241030
  Receipt Date: 20241030
  Transmission Date: 20250115
  Serious: Yes (Other)
  Sender: GLAND PHARMA LTD
  Company Number: US-GLANDPHARMA-US-2024GLNLIT00938

PATIENT
  Age: 35 Year
  Sex: Female

DRUGS (1)
  1. EPHEDRINE SULFATE [Suspect]
     Active Substance: EPHEDRINE SULFATE
     Indication: Hypotension
     Route: 065

REACTIONS (6)
  - Left-to-right cardiac shunt [Unknown]
  - Condition aggravated [Unknown]
  - Patent ductus arteriosus [Unknown]
  - Vascular resistance systemic increased [Unknown]
  - Bradycardia [Unknown]
  - Maternal exposure during delivery [Unknown]
